FAERS Safety Report 13332665 (Version 1)
Quarter: 2017Q1

REPORT INFORMATION
  Report Type: Spontaneous
  Country: US (occurrence: US)
  Receive Date: 20170314
  Receipt Date: 20170314
  Transmission Date: 20170428
  Serious: Yes (Hospitalization)
  Sender: FDA-Public Use
  Company Number: None

PATIENT
  Age: 85 Year
  Sex: Male
  Weight: 54.41 kg

DRUGS (1)
  1. WARFARIN [Suspect]
     Active Substance: WARFARIN
     Indication: ATRIAL FIBRILLATION
     Dates: start: 20050913, end: 20161219

REACTIONS (4)
  - Fall [None]
  - International normalised ratio decreased [None]
  - Blood creatine phosphokinase increased [None]
  - Haemorrhage intracranial [None]

NARRATIVE: CASE EVENT DATE: 20161219
